FAERS Safety Report 14420805 (Version 1)
Quarter: 2018Q1

REPORT INFORMATION
  Report Type: Spontaneous
  Country: US (occurrence: US)
  Receive Date: 20180122
  Receipt Date: 20180122
  Transmission Date: 20180509
  Serious: No
  Sender: FDA-Public Use
  Company Number: US-ROCHE-2007266

PATIENT
  Age: 48 Year
  Sex: Female

DRUGS (1)
  1. RITUXAN [Suspect]
     Active Substance: RITUXIMAB
     Indication: RHEUMATOID ARTHRITIS
     Dosage: DAY 1, DAY 15, THEN EVERY 6 MONTHS
     Route: 042
     Dates: start: 2014, end: 201710

REACTIONS (6)
  - Nausea [Unknown]
  - Feeling hot [Unknown]
  - Muscle spasms [Unknown]
  - Flushing [Unknown]
  - Chest discomfort [Recovered/Resolved]
  - Nausea [Unknown]

NARRATIVE: CASE EVENT DATE: 20170922
